FAERS Safety Report 5157090-0 (Version None)
Quarter: 2006Q4

REPORT INFORMATION
  Report Type: 
  Country: None (occurrence: None)
  Receive Date: 20061116
  Receipt Date: 20061031
  Transmission Date: 20070319
  Serious: Yes (Death)
  Sender: FDA-Public Use
  Company Number: 231729

PATIENT
  Age: 86 Year
  Sex: Male

DRUGS (34)
  1. RANIBIZUMAB (RANIBIZUMAB) PWDR + SOLVENT, INJECTION SOLN [Suspect]
     Indication: MACULAR DEGENERATION
  2. ASACOL [Concomitant]
  3. WELLBUTRIN [Concomitant]
  4. AVANDIA [Concomitant]
  5. GLUCOTROL [Concomitant]
  6. LASIX [Concomitant]
  7. INHALER [Concomitant]
  8. GLIPIZIDE [Concomitant]
  9. PREDNISONE TAB [Concomitant]
  10. PANCREASE (PANCRELIPASE) [Concomitant]
  11. ALPHAGAN [Concomitant]
  12. CALCIUM (CALCIUM NOS) [Concomitant]
  13. TRAVATAN [Concomitant]
  14. ACTONEL [Concomitant]
  15. GLUCOPHAGE [Concomitant]
  16. FAMOTIDINE [Concomitant]
  17. METFORMIN HCL [Concomitant]
  18. HUMULIN R [Concomitant]
  19. TYLENOL (CAPLET) [Concomitant]
  20. ADVAIR DISKUS 100/50 [Concomitant]
  21. DUONEB (ALBUTEROL, ALBUTEROL SULFATE, IPRATROPIUM BROMIDE) [Concomitant]
  22. ALDACTONE [Concomitant]
  23. FORADIL [Concomitant]
  24. COLACE (DOCUSATE SODIUM) [Concomitant]
  25. K-DUR 10 [Concomitant]
  26. LOVENOX [Concomitant]
  27. MULTIVITAMIN (MULTIVITAMINS NOS) [Concomitant]
  28. NIFEREX (POLYSACCHARIDE-IRON COMPLEX) [Concomitant]
  29. PROTONIX [Concomitant]
  30. SILVADENE (SILVER SULFADIAZINE) [Concomitant]
  31. SPIRIVA [Concomitant]
  32. CYANOCOBALAMIN [Concomitant]
  33. VITAMIN D (CHOLECALCIFEROL) [Concomitant]
  34. ZESTRIL [Concomitant]

REACTIONS (11)
  - BLOOD BICARBONATE INCREASED [None]
  - BLOOD CHLORIDE DECREASED [None]
  - BLOOD GLUCOSE INCREASED [None]
  - BLOOD UREA INCREASED [None]
  - CHRONIC OBSTRUCTIVE PULMONARY DISEASE [None]
  - CONDITION AGGRAVATED [None]
  - HAEMATOCRIT DECREASED [None]
  - MALIGNANT PLEURAL EFFUSION [None]
  - MULTIPLE MYELOMA [None]
  - PNEUMONIA STAPHYLOCOCCAL [None]
  - RESPIRATORY FAILURE [None]
